FAERS Safety Report 20559992 (Version 1)
Quarter: 2022Q1

REPORT INFORMATION
  Report Type: Spontaneous
  Country: US (occurrence: None)
  Receive Date: 20220307
  Receipt Date: 20220307
  Transmission Date: 20220423
  Serious: Yes (Hospitalization)
  Sender: FDA-Public Use
  Company Number: None

PATIENT
  Sex: Male

DRUGS (7)
  1. HUMIRA [Suspect]
     Active Substance: ADALIMUMAB
     Indication: Crohn^s disease
     Dosage: OTHER FREQUENCY : 20MG/0.2ML ;?
     Route: 058
     Dates: start: 20210108
  2. FOLIC ACID [Concomitant]
     Active Substance: FOLIC ACID
  3. HUMIRA [Concomitant]
  4. METHOTREXATE [Concomitant]
     Active Substance: METHOTREXATE
  5. ONDANSETRON HCL [Concomitant]
     Active Substance: ONDANSETRON HYDROCHLORIDE
  6. PROBIOTIC [Concomitant]
  7. ZYRTEC CHILD [Concomitant]

REACTIONS (1)
  - Immune system disorder [None]
